FAERS Safety Report 8517674-6 (Version None)
Quarter: 2012Q3

REPORT INFORMATION
  Report Type: 
  Country: None (occurrence: None)
  Receive Date: 20120718
  Receipt Date: 20120711
  Transmission Date: 20120928
  Serious: Yes (Hospitalization)
  Sender: FDA-Public Use
  Company Number: US-CELGENEUS-163-21880-12071212

PATIENT
  Age: 78 Year
  Sex: Female
  Weight: 39.5 kg

DRUGS (17)
  1. VELCADE [Concomitant]
     Route: 065
  2. NASAL SALINE [Concomitant]
     Route: 045
  3. POTASSIUM CHLORIDE [Concomitant]
     Route: 065
  4. REVLIMID [Suspect]
     Indication: MULTIPLE MYELOMA
     Route: 048
     Dates: start: 20120507, end: 20120509
  5. REGLAN [Concomitant]
     Route: 065
  6. ONDANSETRON [Concomitant]
     Route: 065
  7. OMEPRAZOLE [Concomitant]
     Route: 065
  8. MAGNESIUM OXIDE [Concomitant]
     Route: 065
  9. METHADONE HCL [Concomitant]
     Route: 065
  10. SODIUM CHLORIDE [Concomitant]
     Route: 065
  11. DEXAMETHASONE [Suspect]
     Indication: MULTIPLE MYELOMA
     Route: 065
     Dates: start: 20120507, end: 20120509
  12. MIRALAX [Concomitant]
     Route: 065
  13. VALTREX [Concomitant]
     Route: 065
  14. NORVASC [Concomitant]
     Route: 065
  15. CHLORHEXIDINE GLUCONATE [Concomitant]
     Route: 065
  16. LOSARTAN POTASSIUM [Concomitant]
     Route: 065
  17. SENOKOT [Concomitant]
     Route: 065

REACTIONS (5)
  - CONFUSIONAL STATE [None]
  - NAUSEA [None]
  - ABDOMINAL PAIN [None]
  - HYPOPHAGIA [None]
  - DECREASED ACTIVITY [None]
